FAERS Safety Report 4777094-7 (Version None)
Quarter: 2005Q3

REPORT INFORMATION
  Report Type: 
  Country: None (occurrence: None)
  Receive Date: 20050923
  Receipt Date: 20050916
  Transmission Date: 20060218
  Serious: Yes (Disabling)
  Sender: FDA-Public Use
  Company Number: JP-JNJFOC-20050903682

PATIENT
  Age: 72 Year
  Sex: Female

DRUGS (7)
  1. TAVANIC [Suspect]
     Route: 048
     Dates: start: 20050613, end: 20050619
  2. TAVANIC [Suspect]
     Indication: SINUSITIS
     Route: 048
     Dates: start: 20050613, end: 20050619
  3. SULTANOL [Concomitant]
     Indication: BRONCHITIS
     Route: 055
  4. ALBUTEROL [Concomitant]
     Indication: BRONCHITIS
     Route: 055
  5. WOBENZYM [Concomitant]
     Indication: BRONCHITIS
     Route: 048
  6. ACC [Concomitant]
     Indication: BRONCHITIS
     Route: 048
  7. CALCIUM GLUCONATE [Concomitant]
     Indication: OSTEOPOROSIS
     Route: 048

REACTIONS (2)
  - ANOSMIA [None]
  - DYSGEUSIA [None]
